FAERS Safety Report 4286903-X (Version None)
Quarter: 2004Q1

REPORT INFORMATION
  Report Type: 
  Country: None (occurrence: None)
  Receive Date: 20040204
  Receipt Date: 20040122
  Transmission Date: 20041129
  Serious: Yes (Disabling)
  Sender: FDA-Public Use
  Company Number: 2004AP00332

PATIENT
  Age: 63 Year
  Sex: Female

DRUGS (5)
  1. AMITRIPTYLINE [Suspect]
     Dates: start: 19990201
  2. IMIPRAMINE [Suspect]
     Dates: start: 19990201
  3. AMOXAPINE [Suspect]
     Dates: start: 19990201
  4. NITRAZEPAM [Suspect]
     Dates: start: 19990201
  5. ESTAZOLAM [Suspect]
     Dates: start: 19990201

REACTIONS (7)
  - ANGIOPATHY [None]
  - DRUG TOXICITY [None]
  - MACULAR OEDEMA [None]
  - RETINAL VASCULAR DISORDER [None]
  - RETINOPATHY [None]
  - SCOTOMA [None]
  - VISUAL ACUITY REDUCED [None]
